FAERS Safety Report 26107832 (Version 1)
Quarter: 2025Q4

REPORT INFORMATION
  Report Type: Spontaneous
  Country: JP (occurrence: JP)
  Receive Date: 20251201
  Receipt Date: 20251201
  Transmission Date: 20260118
  Serious: Yes (Other)
  Sender: MERCK SHARP & DOHME LLC
  Company Number: JP-009507513-2354079

PATIENT
  Sex: Female

DRUGS (2)
  1. KEYTRUDA [Suspect]
     Active Substance: PEMBROLIZUMAB
     Indication: Uterine cancer
     Dates: start: 202202
  2. LENVATINIB [Suspect]
     Active Substance: LENVATINIB
     Indication: Uterine cancer
     Dates: start: 202202

REACTIONS (19)
  - Neuropathy peripheral [Unknown]
  - Immune-mediated hypothyroidism [Unknown]
  - Diarrhoea [Unknown]
  - Platelet count decreased [Unknown]
  - Proteinuria [Unknown]
  - Arthritis [Unknown]
  - Palmar-plantar erythrodysaesthesia syndrome [Unknown]
  - Cognitive disorder [Unknown]
  - Pyrexia [Unknown]
  - Adrenal insufficiency [Unknown]
  - Immune-mediated myositis [Unknown]
  - Stomatitis [Unknown]
  - Platelet count decreased [Unknown]
  - Anaemia [Unknown]
  - Silent thyroiditis [Unknown]
  - Hyperthyroidism [Unknown]
  - Immune-mediated hepatic disorder [Unknown]
  - Blood pressure increased [Unknown]
  - Pulmonary toxicity [Unknown]
